FAERS Safety Report 15124457 (Version 3)
Quarter: 2018Q3

REPORT INFORMATION
  Report Type: Spontaneous
  Country: CA (occurrence: JP)
  Receive Date: 20180710
  Receipt Date: 20180815
  Transmission Date: 20181010
  Serious: Yes (Hospitalization)
  Sender: FDA-Public Use
  Company Number: JP-ORION CORPORATION ORION PHARMA-ENT 2018-0070

PATIENT
  Age: 67 Year
  Sex: Male

DRUGS (12)
  1. DOMPERIDONE [Concomitant]
     Active Substance: DOMPERIDONE
     Route: 065
  2. SENNOSIDE [Concomitant]
     Active Substance: SENNOSIDES
     Route: 065
  3. GALANTAMINE. [Concomitant]
     Active Substance: GALANTAMINE
     Indication: HALLUCINATION
     Route: 065
  4. COMTAN [Suspect]
     Active Substance: ENTACAPONE
     Indication: PARKINSON^S DISEASE
     Route: 048
  5. LEVODOPA/CARBIDOPA [Concomitant]
     Active Substance: CARBIDOPA\LEVODOPA
     Dosage: 1 DF+LCIG
     Route: 065
  6. DOPASTON [Concomitant]
     Active Substance: LEVODOPA
     Route: 065
  7. DROXIDOPA [Concomitant]
     Active Substance: DROXIDOPA
     Route: 065
  8. BROMOCRIPTINE [Concomitant]
     Active Substance: BROMOCRIPTINE
     Route: 065
  9. LEVODOPA/CARBIDOPA [Concomitant]
     Active Substance: CARBIDOPA\LEVODOPA
     Dosage: 800 MG Q8D (EVERY 2 HOURS).
     Route: 065
  10. LEVODOPA/CARBIDOPA [Concomitant]
     Active Substance: CARBIDOPA\LEVODOPA
     Dosage: 600 MG Q6D
     Route: 065
  11. GALANTAMINE. [Concomitant]
     Active Substance: GALANTAMINE
     Indication: PERSECUTORY DELUSION
  12. ZONISAMIDE. [Concomitant]
     Active Substance: ZONISAMIDE
     Route: 065

REACTIONS (7)
  - Therapeutic response shortened [Unknown]
  - Infection [Unknown]
  - Parkinson^s disease [Unknown]
  - Fall [Unknown]
  - Constipation [Unknown]
  - Hallucination [Unknown]
  - Dehydration [Unknown]
